FAERS Safety Report 5097644-3 (Version None)
Quarter: 2006Q3

REPORT INFORMATION
  Report Type: 
  Country: None (occurrence: None)
  Receive Date: 20060901
  Receipt Date: 20060824
  Transmission Date: 20061208
  Serious: Yes (Life-Threatening, Hospitalization)
  Sender: FDA-Public Use
  Company Number: 06H-163-0309757-00

PATIENT
  Sex: Female

DRUGS (3)
  1. MORPHINE SULFATE [Suspect]
     Dosage: 1MG/HR, 1MG PCA W/4 HR LIMIT-25MG, CONT., INTRAVENOUS; 14 MG, CONTINUOUS, INTRAVENOUS
     Route: 042
     Dates: start: 20050119
  2. MORPHINE SULFATE [Suspect]
     Dosage: 1MG/HR, 1MG PCA W/4 HR LIMIT-25MG, CONT., INTRAVENOUS; 14 MG, CONTINUOUS, INTRAVENOUS
     Route: 042
     Dates: start: 20060119
  3. ZOLOFT [Concomitant]

REACTIONS (7)
  - CEREBRAL ISCHAEMIA [None]
  - DEVICE MALFUNCTION [None]
  - FACIAL PALSY [None]
  - FLAT AFFECT [None]
  - INCORRECT DOSE ADMINISTERED [None]
  - PARALYSIS [None]
  - RESPIRATORY ARREST [None]
